FAERS Safety Report 9958533 (Version 3)
Quarter: 2014Q2

REPORT INFORMATION
  Report Type: Spontaneous
  Country: JP (occurrence: JP)
  Receive Date: 20140305
  Receipt Date: 20140526
  Transmission Date: 20141212
  Serious: Yes (Death, Life-Threatening, Hospitalization)
  Sender: FDA-Public Use
  Company Number: JP-BRISTOL-MYERS SQUIBB COMPANY-20352423

PATIENT
  Age: 83 Year
  Sex: Female
  Weight: 40 kg

DRUGS (7)
  1. ERBITUX SOLN FOR INF 5MG/ML [Suspect]
     Indication: COLON CANCER
     Route: 041
     Dates: start: 20140213, end: 20140213
  2. IRINOTECAN HCL [Concomitant]
     Indication: COLON CANCER
     Dosage: INJECTION?LAST DOSE:13FEB14
     Route: 041
     Dates: start: 201401, end: 201402
  3. CALCIUM FOLINATE [Concomitant]
     Indication: COLON CANCER
     Route: 041
     Dates: start: 201401, end: 201401
  4. 5-FU [Concomitant]
     Indication: COLON CANCER
     Dosage: (1000 MG,L IN 1 D),INTRAVENOUS DRIP ?LAST DOSE:13FEB14
     Route: 040
     Dates: start: 201401, end: 20140213
  5. ALOXI [Concomitant]
     Indication: COLON CANCER
     Dosage: LAST DOSE:13FEB14
     Route: 041
     Dates: start: 20140213, end: 20140213
  6. DEXART [Concomitant]
     Indication: COLON CANCER
     Dosage: LAST DOSE:13FEB14
     Route: 041
     Dates: start: 20140213, end: 20140213
  7. RANITIDINE [Concomitant]
     Indication: COLON CANCER
     Dosage: LAST DOSE:13FEB14
     Route: 042
     Dates: start: 20140213, end: 20140213

REACTIONS (3)
  - Pneumonia aspiration [Fatal]
  - Intestinal obstruction [Recovering/Resolving]
  - Tumour lysis syndrome [Recovering/Resolving]
